FAERS Safety Report 9868089 (Version 1)
Quarter: 2014Q1

REPORT INFORMATION
  Report Type: Spontaneous
  Country: CA (occurrence: CA)
  Receive Date: 20140204
  Receipt Date: 20140204
  Transmission Date: 20141002
  Serious: Yes (Other)
  Sender: FDA-Public Use
  Company Number: CA-VIIV HEALTHCARE LIMITED-A1058564A

PATIENT
  Age: 46 Year
  Sex: Male

DRUGS (5)
  1. KIVEXA [Suspect]
     Indication: HIV INFECTION
     Dosage: 600MG PER DAY
     Route: 065
     Dates: start: 20131128
  2. DARUNAVIR [Concomitant]
  3. RITONAVIR [Concomitant]
  4. ETRAVIRINE [Concomitant]
  5. RALTEGRAVIR [Concomitant]

REACTIONS (1)
  - Myocardial infarction [Recovered/Resolved]
